FAERS Safety Report 9391355 (Version 1)
Quarter: 2013Q3

REPORT INFORMATION
  Report Type: Spontaneous
  Country: US (occurrence: None)
  Receive Date: 20130705
  Receipt Date: 20130705
  Transmission Date: 20140515
  Serious: Yes (Life-Threatening, Hospitalization)
  Sender: FDA-Public Use
  Company Number: 2013ST000182

PATIENT
  Age: 15 Year
  Sex: Female

DRUGS (2)
  1. METFORMIN [Suspect]
     Indication: SUICIDE ATTEMPT
     Route: 048
  2. QUETIAPINE [Suspect]
     Route: 048

REACTIONS (9)
  - Intentional overdose [None]
  - Suicide attempt [None]
  - Laceration [None]
  - Vomiting [None]
  - Somnolence [None]
  - Lactic acidosis [None]
  - Hypoglycaemia [None]
  - Nausea [None]
  - Procedural hypotension [None]
